FAERS Safety Report 9753423 (Version 1)
Quarter: 2013Q4

REPORT INFORMATION
  Report Type: Spontaneous
  Country: US (occurrence: US)
  Receive Date: 20131213
  Receipt Date: 20131213
  Transmission Date: 20140711
  Serious: No
  Sender: FDA-Public Use
  Company Number: US-TEVA-406671USA

PATIENT
  Age: 28 Year
  Sex: Female
  Weight: 68.1 kg

DRUGS (2)
  1. PARAGARD 380A [Suspect]
     Indication: CONTRACEPTION
     Route: 015
     Dates: start: 20130501, end: 20130516
  2. CLONAZEPAM [Concomitant]
     Indication: ANXIETY

REACTIONS (5)
  - Infection [Not Recovered/Not Resolved]
  - Pain [Not Recovered/Not Resolved]
  - Vaginal odour [Recovered/Resolved]
  - Vaginal discharge [Recovered/Resolved]
  - Metrorrhagia [Recovered/Resolved]
